FAERS Safety Report 23715383 (Version 2)
Quarter: 2024Q2

REPORT INFORMATION
  Report Type: Other
  Country: PK (occurrence: None)
  Receive Date: 20240407
  Receipt Date: 20240408
  Transmission Date: 20240716
  Serious: Yes (Other)
  Sender: FDA-Public Use
  Company Number: PK-ROCHE-3536924

PATIENT
  Age: 42 Year
  Sex: Male

DRUGS (2)
  1. RITUXIMAB [Suspect]
     Active Substance: RITUXIMAB
     Indication: Granulomatosis with polyangiitis
     Dosage: 4 CYCLES
     Route: 041
     Dates: start: 20240401
  2. RITUXIMAB [Suspect]
     Active Substance: RITUXIMAB
     Indication: Microscopic polyangiitis

REACTIONS (1)
  - Granulomatosis with polyangiitis [Unknown]

NARRATIVE: CASE EVENT DATE: 20240401
